FAERS Safety Report 5345228-1 (Version None)
Quarter: 2007Q2

REPORT INFORMATION
  Report Type: 
  Country: None (occurrence: None)
  Receive Date: 20070605
  Receipt Date: 20070530
  Transmission Date: 20071010
  Serious: Yes (Hospitalization)
  Sender: FDA-Public Use
  Company Number: PHRM2007FR01299

PATIENT
  Age: 35 Year
  Sex: Female
  Weight: 78 kg

DRUGS (11)
  1. LASIX [Suspect]
     Dosage: 250 MG, QD
     Route: 048
     Dates: start: 20070123, end: 20070216
  2. ESIDRIX [Suspect]
     Dosage: 25 MG, QD
     Route: 048
     Dates: start: 20070123, end: 20070216
  3. ODRIK [Suspect]
     Dosage: 0.5 MG, QD
     Route: 048
     Dates: end: 20070211
  4. ODRIK [Suspect]
     Dosage: 2 MG, QD
     Route: 048
     Dates: start: 20070212, end: 20070214
  5. LEVEMIR [Concomitant]
  6. NOVORAPID [Concomitant]
  7. OMEPRAZOLE [Concomitant]
  8. CALCIDIA [Concomitant]
  9. RIFINAH [Concomitant]
  10. LAROXYL [Concomitant]
  11. ARANESP [Concomitant]

REACTIONS (11)
  - ASTHENIA [None]
  - BLOOD CREATININE INCREASED [None]
  - CONDITION AGGRAVATED [None]
  - CREATININE RENAL CLEARANCE DECREASED [None]
  - DEHYDRATION [None]
  - HEPATITIS [None]
  - MUSCLE SPASMS [None]
  - NAUSEA [None]
  - PROTEINURIA [None]
  - RENAL FAILURE ACUTE [None]
  - VOMITING [None]
